FAERS Safety Report 20933344 (Version 3)
Quarter: 2022Q3

REPORT INFORMATION
  Report Type: Spontaneous
  Country: US (occurrence: US)
  Receive Date: 20220608
  Receipt Date: 20220830
  Transmission Date: 20221027
  Serious: No
  Sender: FDA-Public Use
  Company Number: US-PFIZER INC-202200797694

PATIENT
  Age: 54 Year
  Sex: Female
  Weight: 135.17 kg

DRUGS (5)
  1. PAXLOVID [Suspect]
     Active Substance: NIRMATRELVIR\RITONAVIR
     Indication: COVID-19 treatment
     Dosage: UNK
     Dates: start: 20220601
  2. AMBIEN [Concomitant]
     Active Substance: ZOLPIDEM TARTRATE
     Indication: Insomnia
     Dosage: UNK
  3. MELATONIN [Concomitant]
     Active Substance: MELATONIN
     Dosage: 10-15MG
  4. CHAMOMILE [Concomitant]
     Active Substance: CHAMOMILE
     Dosage: UNK
  5. PASSION FLOWER [Concomitant]
     Active Substance: HERBALS\HOMEOPATHICS\PASSIFLORA INCARNATA FLOWER
     Dosage: UNK

REACTIONS (5)
  - Headache [Unknown]
  - Nightmare [Unknown]
  - Dysgeusia [Unknown]
  - Fatigue [Unknown]
  - Panic reaction [Unknown]

NARRATIVE: CASE EVENT DATE: 20220601
